FAERS Safety Report 8942111 (Version 1)
Quarter: 2012Q4

REPORT INFORMATION
  Report Type: 
  Country: FR (occurrence: FR)
  Receive Date: 20121130
  Receipt Date: 20121130
  Transmission Date: 20130627
  Serious: Yes (Hospitalization)
  Sender: FDA-Public Use
  Company Number: FR-GLAXOSMITHKLINE-B0846157A

PATIENT
  Age: 50 Year
  Sex: Male

DRUGS (1)
  1. REVOLADE [Suspect]
     Indication: IDIOPATHIC THROMBOCYTOPENIC PURPURA
     Dosage: 25MG Per day
     Route: 048
     Dates: start: 201205, end: 201210

REACTIONS (2)
  - Pulmonary embolism [Unknown]
  - Phlebitis [Recovered/Resolved]
